FAERS Safety Report 18384788 (Version 2)
Quarter: 2020Q4

REPORT INFORMATION
  Report Type: Report from Study
  Country: IN (occurrence: IN)
  Receive Date: 20201015
  Receipt Date: 20201110
  Transmission Date: 20210114
  Serious: Yes (Other)
  Sender: FDA-Public Use
  Company Number: IN-BIOGEN-2020BI00922202

PATIENT
  Age: 3 Year
  Sex: Male

DRUGS (3)
  1. SPINRAZA [Suspect]
     Active Substance: NUSINERSEN
     Route: 065
     Dates: end: 20200421
  2. SPINRAZA [Suspect]
     Active Substance: NUSINERSEN
     Indication: SPINAL MUSCULAR ATROPHY
     Dosage: 4TH LOADING DOSE
     Route: 065
     Dates: start: 20191217
  3. SPINRAZA [Suspect]
     Active Substance: NUSINERSEN
     Dosage: 3 LOADING DOSES EVERY 15 DAYS FOLLOWED BY 4TH LOADING DOSE 1 MONTH LATER. (23.10.19; 6.11.19; 20....
     Route: 065
     Dates: start: 20191023

REACTIONS (2)
  - Prothrombin time prolonged [Unknown]
  - Activated partial thromboplastin time prolonged [Unknown]

NARRATIVE: CASE EVENT DATE: 20200905
